FAERS Safety Report 7014632-8 (Version None)
Quarter: 2010Q3

REPORT INFORMATION
  Report Type: 
  Country: None (occurrence: None)
  Receive Date: 20100927
  Receipt Date: 20100919
  Transmission Date: 20110219
  Serious: Yes (Hospitalization)
  Sender: FDA-Public Use
  Company Number: IT-ROCHE-721600

PATIENT
  Sex: Male
  Weight: 102 kg

DRUGS (3)
  1. BEVACIZUMAB [Suspect]
     Indication: NON-SMALL CELL LUNG CANCER
     Dosage: FORM AS PER PROTOCOL: VIAL FOR INFUSION. LAST DOSE PRIOR TO SAE 05 AUGUST 2010.
     Route: 042
     Dates: start: 20100216, end: 20100817
  2. ALIMTA [Suspect]
     Indication: NON-SMALL CELL LUNG CANCER
     Dosage: FORM:INFUSION. LAST DOSE PRIOR TO SAE 05 AUGUST 2010.
     Route: 042
     Dates: start: 20100216, end: 20100817
  3. ZESTRIL [Concomitant]
     Dosage: FROM:UNKNOWN AND  FREQUENCY:EVERYDAY.
     Dates: start: 19990101

REACTIONS (1)
  - TONGUE OEDEMA [None]
